FAERS Safety Report 7267801-6 (Version None)
Quarter: 2011Q1

REPORT INFORMATION
  Report Type: 
  Country: None (occurrence: None)
  Receive Date: 20110201
  Receipt Date: 20110124
  Transmission Date: 20110831
  Serious: Yes (Hospitalization)
  Sender: FDA-Public Use
  Company Number: A0910689A

PATIENT
  Sex: Female

DRUGS (3)
  1. AMFEBUTAMONE [Suspect]
     Indication: ANXIETY
     Dosage: 150MG PER DAY
     Route: 048
  2. NORVASC [Concomitant]
  3. DIOVAN [Suspect]
     Dosage: 320MG PER DAY

REACTIONS (3)
  - DYSGEUSIA [None]
  - DRUG INTERACTION [None]
  - ANXIETY DISORDER [None]
